FAERS Safety Report 13018213 (Version 1)
Quarter: 2016Q4

REPORT INFORMATION
  Report Type: Spontaneous
  Country: CN (occurrence: CN)
  Receive Date: 20161212
  Receipt Date: 20161212
  Transmission Date: 20170207
  Serious: Yes (Hospitalization)
  Sender: FDA-Public Use
  Company Number: CN-NOVOPROD-522009

PATIENT
  Age: 47 Year
  Sex: Male

DRUGS (2)
  1. NOVOMIX 50 [Suspect]
     Active Substance: INSULIN ASPART
     Indication: DIABETES MELLITUS
     Dosage: UNK (SINCE HALF A YEAR)
     Route: 065
  2. NOVOMIX 30 [Suspect]
     Active Substance: INSULIN ASPART
     Indication: DIABETES MELLITUS
     Dosage: SINCE ONE AND A HALF YEARS
     Route: 065

REACTIONS (1)
  - Lung infection [Recovering/Resolving]
